FAERS Safety Report 7940770 (Version 4)
Quarter: 2013Q3

REPORT INFORMATION
  Report Type: Spontaneous
  Country: BR (occurrence: BR)
  Receive Date: 20110511
  Receipt Date: 20130926
  Transmission Date: 20140515
  Serious: Yes (Hospitalization)
  Sender: FDA-Public Use
  Company Number: BR-US-EMD SERONO, INC.-7057941

PATIENT
  Age: 53 Year
  Sex: Male

DRUGS (9)
  1. REBIF [Suspect]
     Indication: RELAPSING-REMITTING MULTIPLE SCLEROSIS
     Dates: start: 19990401
  2. BACLOFEN [Concomitant]
     Indication: PRODUCT USED FOR UNKNOWN INDICATION
  3. MANTIDAN [Concomitant]
     Indication: PRODUCT USED FOR UNKNOWN INDICATION
  4. RETEMIC [Concomitant]
     Indication: PRODUCT USED FOR UNKNOWN INDICATION
  5. FLUOXETINE [Concomitant]
     Indication: PRODUCT USED FOR UNKNOWN INDICATION
  6. SINVASTATINA MEPHA [Concomitant]
     Indication: PRODUCT USED FOR UNKNOWN INDICATION
  7. SINVASTATINA MEPHA [Concomitant]
  8. SOMALGIN                           /00009201/ [Concomitant]
     Indication: PRODUCT USED FOR UNKNOWN INDICATION
  9. VENLAFAXINE [Concomitant]
     Indication: PRODUCT USED FOR UNKNOWN INDICATION

REACTIONS (11)
  - Ischaemic stroke [Recovered/Resolved with Sequelae]
  - VIIth nerve paralysis [Recovering/Resolving]
  - Gait disturbance [Not Recovered/Not Resolved]
  - Hemiparesis [Not Recovered/Not Resolved]
  - Micturition urgency [Not Recovered/Not Resolved]
  - Emotional disorder [Unknown]
  - Speech disorder [Not Recovered/Not Resolved]
  - Dysstasia [Unknown]
  - Dysphagia [Not Recovered/Not Resolved]
  - Muscular weakness [Not Recovered/Not Resolved]
  - Disease progression [Unknown]
